FAERS Safety Report 5292562-X (Version None)
Quarter: 2007Q2

REPORT INFORMATION
  Report Type: 
  Country: None (occurrence: None)
  Receive Date: 20070410
  Receipt Date: 20070404
  Transmission Date: 20071010
  Serious: Yes (Hospitalization)
  Sender: FDA-Public Use
  Company Number: US-PFIZER INC-2007027019

PATIENT
  Sex: Female

DRUGS (1)
  1. GEODON [Suspect]
     Dosage: DAILY DOSE:40MG

REACTIONS (3)
  - HYPERSENSITIVITY [None]
  - RESPIRATORY DEPRESSION [None]
  - SWOLLEN TONGUE [None]
